FAERS Safety Report 15844357 (Version 10)
Quarter: 2019Q1

REPORT INFORMATION
  Report Type: Spontaneous
  Country: FR (occurrence: FR)
  Receive Date: 20190118
  Receipt Date: 20190325
  Transmission Date: 20190417
  Serious: Yes (Death, Other)
  Sender: FDA-Public Use
  Company Number: PHHY2019FR010334

PATIENT
  Age: 64 Year
  Sex: Male
  Weight: 101 kg

DRUGS (8)
  1. ATORVASTATINE [Suspect]
     Active Substance: ATORVASTATIN
     Indication: CEREBROVASCULAR ACCIDENT
     Dosage: 40 MG, CYCLIC (DRUG)
     Route: 048
     Dates: start: 20181106
  2. RAMIPRIL. [Suspect]
     Active Substance: RAMIPRIL
     Indication: HYPERTENSION
     Dosage: 5 MG, CYCLIC  (DRUG INTERVAL: 1 DAY)
     Route: 048
     Dates: start: 20161201
  3. ELIQUIS [Suspect]
     Active Substance: APIXABAN
     Indication: CEREBROVASCULAR ACCIDENT PROPHYLAXIS
  4. PANTOPRAZOLE [Suspect]
     Active Substance: PANTOPRAZOLE
     Indication: HYPERCHLORHYDRIA
     Dosage: 20 MG, CYCLIC (DRUG INTERVAL:1 DAY)
     Route: 048
     Dates: start: 2015
  5. AMLODIPINE [Suspect]
     Active Substance: AMLODIPINE BESYLATE
     Indication: CEREBROVASCULAR ACCIDENT
     Dosage: 10 MG, CYCLIC (DRUG INTERVAL: 1 DAY)
     Route: 048
     Dates: start: 20181029
  6. ESIDREX [Suspect]
     Active Substance: HYDROCHLOROTHIAZIDE
     Indication: HYPERTENSION
     Dosage: 25 MG, CYCLIC 25 MG, CYCLIC (DRUG INTERVAL: 1 DAY)
     Route: 048
     Dates: start: 20170601
  7. ELIQUIS [Suspect]
     Active Substance: APIXABAN
     Indication: ATRIAL FIBRILLATION
     Dosage: 5 MG, CYCLIC (DRUG INTERVAL: 1 DAY)
     Route: 048
     Dates: start: 20181106
  8. ZOPICLONE [Concomitant]
     Active Substance: ZOPICLONE
     Indication: PRODUCT USED FOR UNKNOWN INDICATION
     Dosage: 7.5 MG, UNK (0-0-0-0.5)
     Route: 065

REACTIONS (2)
  - Pancreatitis acute [Fatal]
  - Abdominal pain [Fatal]

NARRATIVE: CASE EVENT DATE: 20181127
